FAERS Safety Report 5859663-6 (Version None)
Quarter: 2008Q3

REPORT INFORMATION
  Report Type: 
  Country: None (occurrence: None)
  Receive Date: 20080818
  Receipt Date: 20080714
  Transmission Date: 20090109
  Serious: No
  Sender: FDA-Public Use
  Company Number: WAES 0807USA02540

PATIENT
  Age: 63 Year
  Sex: Female

DRUGS (5)
  1. JANUVIA [Suspect]
     Indication: DIABETES MELLITUS
     Dosage: 100 MG DAILY PO
     Route: 048
     Dates: start: 20080709
  2. AMLODIPINE BESYLATE [Concomitant]
  3. ASPIRIN [Concomitant]
  4. SIMVASTATIN [Concomitant]
  5. VITAMINS (UNSPECIFIED) [Concomitant]

REACTIONS (1)
  - BLOOD GLUCOSE ABNORMAL [None]
